FAERS Safety Report 10312036 (Version 2)
Quarter: 2014Q3

REPORT INFORMATION
  Report Type: Spontaneous
  Country: BR (occurrence: BR)
  Receive Date: 20140717
  Receipt Date: 20140717
  Transmission Date: 20150326
  Serious: Yes (Other)
  Sender: FDA-Public Use
  Company Number: PHHY2014BR084428

PATIENT
  Sex: Female
  Weight: 59 kg

DRUGS (3)
  1. RIVOTRIL [Concomitant]
     Active Substance: CLONAZEPAM
     Indication: HEADACHE
     Dosage: 1 DF, DAILY (2 MG)
     Route: 048
  2. OMEPRAZOLE. [Concomitant]
     Active Substance: OMEPRAZOLE
     Indication: PROPHYLAXIS
     Dosage: 2 DF, DAILY (20 MG)
     Route: 048
  3. DESERILA [Suspect]
     Active Substance: METHYSERGIDE MALEATE
     Indication: HEADACHE
     Dosage: 4 DF (1MG) DAILY
     Route: 048
     Dates: start: 1992

REACTIONS (4)
  - Spinal column stenosis [Not Recovered/Not Resolved]
  - Headache [Not Recovered/Not Resolved]
  - Pain [Unknown]
  - Hypothyroidism [Recovering/Resolving]
